FAERS Safety Report 18765335 (Version 13)
Quarter: 2023Q4

REPORT INFORMATION
  Report Type: Spontaneous
  Country: CA (occurrence: CA)
  Receive Date: 20210121
  Receipt Date: 20231110
  Transmission Date: 20240110
  Serious: Yes (Other)
  Sender: FDA-Public Use
  Company Number: CA-CELLTRION INC.-2020CA034920

PATIENT

DRUGS (24)
  1. INFLECTRA [Suspect]
     Active Substance: INFLIXIMAB-DYYB
     Indication: Colitis ulcerative
     Dosage: UNK AT WEEK 0, 2, 6 THEN EVERY 4 WEEKS
     Route: 042
     Dates: start: 20201221
  2. INFLECTRA [Suspect]
     Active Substance: INFLIXIMAB-DYYB
     Dosage: 1 DF UNKNOWN AT WEEK 0, 1
     Route: 042
     Dates: start: 20201221, end: 20201228
  3. INFLECTRA [Suspect]
     Active Substance: INFLIXIMAB-DYYB
     Dosage: UNK AT WEEK 2, 6 THEN EVERY 4 WEEKS
     Route: 042
     Dates: start: 20201228
  4. INFLECTRA [Suspect]
     Active Substance: INFLIXIMAB-DYYB
     Dosage: 700 MG WEEK 2, 6 THEN Q 4 WEEKS
     Route: 042
     Dates: start: 20210112
  5. INFLECTRA [Suspect]
     Active Substance: INFLIXIMAB-DYYB
     Dosage: 700 MG, EVERY 4 WEEKS, WEEK 2, 6 THEN Q 4 WEEKS
     Route: 042
     Dates: start: 20210112, end: 20220210
  6. INFLECTRA [Suspect]
     Active Substance: INFLIXIMAB-DYYB
     Dosage: 700 MG WEEK 2, 6 THEN Q 4 WEEKS
     Route: 042
     Dates: start: 20210209
  7. INFLECTRA [Suspect]
     Active Substance: INFLIXIMAB-DYYB
     Dosage: 700 MG WEEK 2, 6 THEN Q 4 WEEKS
     Route: 042
     Dates: start: 20210311
  8. INFLECTRA [Suspect]
     Active Substance: INFLIXIMAB-DYYB
     Dosage: 700 MG WEEK 2, 6 THEN Q 4 WEEKS
     Route: 042
     Dates: start: 20210408
  9. INFLECTRA [Suspect]
     Active Substance: INFLIXIMAB-DYYB
     Dosage: 700 MG WEEK 2, 6 THEN Q 4 WEEKS
     Route: 042
     Dates: start: 20210603
  10. INFLECTRA [Suspect]
     Active Substance: INFLIXIMAB-DYYB
     Dosage: 700 MG WEEK 2, 6 THEN Q 4 WEEKS
     Route: 042
     Dates: start: 20210628
  11. INFLECTRA [Suspect]
     Active Substance: INFLIXIMAB-DYYB
     Dosage: 700 MG WEEK 2, 6 THEN Q 4 WEEKS
     Route: 042
     Dates: start: 20210727
  12. INFLECTRA [Suspect]
     Active Substance: INFLIXIMAB-DYYB
     Dosage: 700 MG WEEK 2, 6 THEN Q 4 WEEKS
     Route: 042
     Dates: start: 20210824
  13. INFLECTRA [Suspect]
     Active Substance: INFLIXIMAB-DYYB
     Dosage: 1 DF,  7.5 MG/KG EVERY 4 WEEKS
     Route: 042
     Dates: start: 20220311, end: 20220802
  14. INFLECTRA [Suspect]
     Active Substance: INFLIXIMAB-DYYB
     Dosage: 7.5(1 DF) MG/KG EVERY 5 WEEKS
     Route: 042
     Dates: start: 20220907
  15. INFLECTRA [Suspect]
     Active Substance: INFLIXIMAB-DYYB
     Dosage: 7.5 MG/KG EVERY 5 WEEKS
     Route: 042
     Dates: start: 20221221
  16. INFLECTRA [Suspect]
     Active Substance: INFLIXIMAB-DYYB
     Dosage: 7.5 MG/KG EVERY 5 WEEKS
     Route: 042
     Dates: start: 20230125
  17. INFLECTRA [Suspect]
     Active Substance: INFLIXIMAB-DYYB
     Dosage: 7.5 MG/KG EVERY 5 WEEKS
     Route: 042
     Dates: start: 20230509
  18. INFLECTRA [Suspect]
     Active Substance: INFLIXIMAB-DYYB
     Dosage: 600 MG, Q 5 WEEK
     Route: 042
     Dates: start: 20230614
  19. INFLECTRA [Suspect]
     Active Substance: INFLIXIMAB-DYYB
     Dosage: 7.5 MG/KG EVERY 5 WEEKS
     Route: 042
     Dates: start: 20230926
  20. INFLECTRA [Suspect]
     Active Substance: INFLIXIMAB-DYYB
     Dosage: 7.5 MG/KG EVERY 5 WEEKS (600MG)
     Route: 042
     Dates: start: 20231101
  21. PREDNISONE [Concomitant]
     Active Substance: PREDNISONE
     Dosage: 60 MG, DAILY (DOSE TO BE DECREASE)
     Route: 065
     Dates: start: 2020
  22. PREDNISONE [Concomitant]
     Active Substance: PREDNISONE
     Dosage: 60 MG DECREASING DOSE
     Route: 065
     Dates: start: 2020
  23. PREDNISONE [Concomitant]
     Active Substance: PREDNISONE
     Dosage: 60 MG, DECREASING DOSE
  24. PREDNISONE [Concomitant]
     Active Substance: PREDNISONE
     Dosage: 60 MG DECREASING DOSE
     Route: 065
     Dates: start: 2020

REACTIONS (11)
  - Weight decreased [Unknown]
  - Drug level above therapeutic [Unknown]
  - Rash pruritic [Not Recovered/Not Resolved]
  - Condition aggravated [Recovered/Resolved]
  - Infusion site extravasation [Unknown]
  - Blood pressure diastolic increased [Not Recovered/Not Resolved]
  - Blood pressure increased [Not Recovered/Not Resolved]
  - Hypertension [Not Recovered/Not Resolved]
  - Off label use [Unknown]
  - Off label use [Unknown]
  - Intentional product use issue [Unknown]

NARRATIVE: CASE EVENT DATE: 20200101
